FAERS Safety Report 7451138-6 (Version None)
Quarter: 2011Q2

REPORT INFORMATION
  Report Type: 
  Country: None (occurrence: None)
  Receive Date: 20110502
  Receipt Date: 20110418
  Transmission Date: 20111010
  Serious: Yes (Hospitalization)
  Sender: FDA-Public Use
  Company Number: PHHY2011DE33593

PATIENT
  Age: 81 Year
  Sex: Male

DRUGS (2)
  1. ZOMETA [Suspect]
     Dosage: UNK, QUARTERLY
     Dates: start: 20101001, end: 20110101
  2. ZOMETA [Suspect]
     Indication: PLASMACYTOMA
     Dosage: UNK, MONTHLY
     Dates: end: 20100101

REACTIONS (5)
  - DEPRESSED LEVEL OF CONSCIOUSNESS [None]
  - CONFUSIONAL STATE [None]
  - HEMIPLEGIA [None]
  - EPILEPSY [None]
  - HYPOAESTHESIA [None]
